FAERS Safety Report 6157243-9 (Version None)
Quarter: 2009Q2

REPORT INFORMATION
  Report Type: 
  Country: None (occurrence: None)
  Receive Date: 20090416
  Receipt Date: 20090407
  Transmission Date: 20091009
  Serious: Yes (Other)
  Sender: FDA-Public Use
  Company Number: US-ASTRAZENECA-2009AC01043

PATIENT
  Age: 64 Year
  Sex: Male

DRUGS (15)
  1. ZOLADEX [Suspect]
     Indication: PROSTATE CANCER
     Route: 065
     Dates: start: 20050501
  2. ZOLADEX [Suspect]
     Route: 065
     Dates: start: 20050801
  3. CARBIDOPA [Concomitant]
     Indication: PARKINSON'S DISEASE
     Route: 048
  4. CARBIDOPA [Concomitant]
     Route: 048
     Dates: start: 20050701
  5. CARBIDOPA [Concomitant]
     Dosage: DOSE REDUCED
     Route: 048
     Dates: start: 20060801
  6. CARBIDOPA [Concomitant]
     Route: 048
     Dates: start: 20070201
  7. LEVODOPA [Concomitant]
     Indication: PARKINSON'S DISEASE
     Route: 048
  8. LEVODOPA [Concomitant]
     Route: 048
     Dates: start: 20050701
  9. LEVODOPA [Concomitant]
     Dosage: DOSE REDUCED
     Route: 048
     Dates: start: 20060801
  10. LEVODOPA [Concomitant]
     Route: 048
     Dates: start: 20070201
  11. PERGOLIDE [Concomitant]
     Indication: PARKINSON'S DISEASE
     Route: 048
  12. CLOPIDOGREL [Concomitant]
     Indication: VASCULAR ANOMALY
  13. CLOPIDOGREL [Concomitant]
     Indication: CHRONIC OBSTRUCTIVE PULMONARY DISEASE
  14. ALBUTEROL [Concomitant]
     Indication: VASCULAR ANOMALY
     Route: 055
  15. ALBUTEROL [Concomitant]
     Indication: CHRONIC OBSTRUCTIVE PULMONARY DISEASE
     Route: 055

REACTIONS (3)
  - APPETITE DISORDER [None]
  - INSOMNIA [None]
  - PARKINSON'S DISEASE [None]
